FAERS Safety Report 18613306 (Version 1)
Quarter: 2020Q4

REPORT INFORMATION
  Report Type: Spontaneous
  Country: US (occurrence: US)
  Receive Date: 20201214
  Receipt Date: 20201214
  Transmission Date: 20210114
  Serious: No
  Sender: FDA-Public Use
  Company Number: US-NOVOPROD-696815

PATIENT
  Age: 53 Year
  Sex: Male
  Weight: 52.16 kg

DRUGS (1)
  1. LEVEMIR [Suspect]
     Active Substance: INSULIN DETEMIR
     Indication: TYPE 2 DIABETES MELLITUS
     Dosage: UNK
     Route: 058
     Dates: start: 20120606

REACTIONS (4)
  - Anxiety [Not Recovered/Not Resolved]
  - Device leakage [Unknown]
  - Device malfunction [Unknown]
  - Product design issue [Unknown]

NARRATIVE: CASE EVENT DATE: 20120606
